FAERS Safety Report 13678465 (Version 1)
Quarter: 2017Q2

REPORT INFORMATION
  Report Type: Spontaneous
  Country: FR (occurrence: FR)
  Receive Date: 20170622
  Receipt Date: 20170622
  Transmission Date: 20170830
  Serious: Yes (Other)
  Sender: FDA-Public Use
  Company Number: FR-BAYER-2017-119014

PATIENT
  Age: 39 Year
  Sex: Female

DRUGS (1)
  1. MIRENA [Suspect]
     Active Substance: LEVONORGESTREL
     Indication: CONTRACEPTION
     Dosage: 20 MCG/24HR, CONT
     Route: 015
     Dates: start: 20101015, end: 20170306

REACTIONS (12)
  - Sleep disorder [Recovering/Resolving]
  - Urinary tract infection [Recovering/Resolving]
  - Vaginal haemorrhage [Recovering/Resolving]
  - Fatigue [Recovering/Resolving]
  - Headache [Recovering/Resolving]
  - Vulvovaginal dryness [Recovering/Resolving]
  - Depression [Recovering/Resolving]
  - Onychoclasis [Recovering/Resolving]
  - Weight increased [Recovering/Resolving]
  - Myalgia [Recovering/Resolving]
  - Tinnitus [Recovering/Resolving]
  - Paraesthesia [Recovering/Resolving]

NARRATIVE: CASE EVENT DATE: 2015
